FAERS Safety Report 4333612-4 (Version None)
Quarter: 2004Q2

REPORT INFORMATION
  Report Type: 
  Country: None (occurrence: None)
  Receive Date: 20040402
  Receipt Date: 20040322
  Transmission Date: 20050107
  Serious: Yes (Disabling)
  Sender: FDA-Public Use
  Company Number: 7701

PATIENT
  Age: 71 Year
  Sex: Male

DRUGS (1)
  1. METHOTREXATE [Suspect]
     Indication: MYCOSIS FUNGOIDES
     Dosage: 10 MG WEEKLY  PO
     Route: 048
     Dates: start: 19970201

REACTIONS (2)
  - COORDINATION ABNORMAL [None]
  - DYSARTHRIA [None]
